FAERS Safety Report 9360946 (Version 1)
Quarter: 2013Q2

REPORT INFORMATION
  Report Type: Spontaneous
  Country: JP (occurrence: JP)
  Receive Date: 20130621
  Receipt Date: 20130621
  Transmission Date: 20140414
  Serious: Yes (Other)
  Sender: FDA-Public Use
  Company Number: JP-OTSUKA-006916

PATIENT
  Sex: 0

DRUGS (2)
  1. PLETAAL [Suspect]
     Route: 048
  2. ABILIFY [Suspect]
     Route: 048

REACTIONS (1)
  - Pancreatitis [Unknown]
